FAERS Safety Report 11437424 (Version 1)
Quarter: 2015Q3

REPORT INFORMATION
  Report Type: Spontaneous
  Country: US (occurrence: US)
  Receive Date: 20150821
  Receipt Date: 20150821
  Transmission Date: 20151125
  Serious: No
  Sender: FDA-Public Use
  Company Number: US-ELI_LILLY_AND_COMPANY-US200704004836

PATIENT
  Sex: Female

DRUGS (6)
  1. FORTEO [Suspect]
     Active Substance: TERIPARATIDE
     Indication: BONE DENSITY DECREASED
     Dosage: 20 UG, UNK
     Dates: start: 2007
  2. XANAX [Concomitant]
     Active Substance: ALPRAZOLAM
  3. CYMBALTA [Suspect]
     Active Substance: DULOXETINE HYDROCHLORIDE
  4. SYNTHROID [Concomitant]
     Active Substance: LEVOTHYROXINE SODIUM
     Dosage: 200 UG, UNK
  5. LASIX [Concomitant]
     Active Substance: FUROSEMIDE
  6. DURAGESIC [Concomitant]
     Active Substance: FENTANYL

REACTIONS (2)
  - Weight increased [Unknown]
  - Malaise [Unknown]

NARRATIVE: CASE EVENT DATE: 2007
